FAERS Safety Report 20575069 (Version 1)
Quarter: 2022Q1

REPORT INFORMATION
  Report Type: Spontaneous
  Country: ES (occurrence: ES)
  Receive Date: 20220310
  Receipt Date: 20220310
  Transmission Date: 20220423
  Serious: Yes (Death)
  Sender: FDA-Public Use
  Company Number: ES-SUN PHARMACEUTICAL INDUSTRIES LTD-2022RR-329258

PATIENT
  Age: 70 Year
  Sex: Male

DRUGS (11)
  1. MORPHINE [Suspect]
     Active Substance: MORPHINE
     Indication: Sedation
     Dosage: UNK
     Route: 042
     Dates: start: 20200918, end: 20200928
  2. CISATRACURIUM BESYLATE [Suspect]
     Active Substance: CISATRACURIUM BESYLATE
     Indication: Sedation
     Dosage: UNK
     Route: 042
     Dates: start: 20200918, end: 20200928
  3. ATORVASTATINA RATIO 20 mg COMPRIMIDOS RECUBIERTOS CON PELICULA EFG,... [Concomitant]
     Indication: Type V hyperlipidaemia
     Dosage: 20.0 MG CE
     Route: 048
     Dates: start: 20170814
  4. OMEPRAZOL CINFA 20 mg CAPSULAS DURAS GASTRORRESISTENTES EFG , 56 ca... [Concomitant]
     Indication: Type V hyperlipidaemia
     Dosage: 40.0 MG A-DE
     Route: 048
     Dates: start: 20120228
  5. ALOPURINOL CINFAMED 100 MG COMPRIMIDOS EFG, 100 comprimidos [Concomitant]
     Indication: Type V hyperlipidaemia
     Dosage: 100.0 MG DE
     Route: 048
     Dates: start: 20111124
  6. UROREC 8 MG CAPSULAS DURAS, 30 capsulas [Concomitant]
     Indication: Benign prostatic hyperplasia
     Dosage: 8.0 MG C/24 H
     Route: 048
     Dates: start: 20160121
  7. INDAPAMIDA RETARD CINFA 1,5 mg COMPRIMIDOS DE LIBERACION PROLONGADA... [Concomitant]
     Indication: Essential hypertension
     Dosage: 1.5 MG DE
     Route: 048
     Dates: start: 20131024
  8. RAMIPRIL RATIOPHARM 10 mg COMPRIMIDOS 28 comprimidos [Concomitant]
     Indication: Essential hypertension
     Dosage: 10.0 MG DE
     Route: 048
     Dates: start: 20131024
  9. EUCREAS 50 MG/850 MG COMPRIMIDOS RECUBIERTOS CON PELICULA, 60 compr... [Concomitant]
     Indication: Type 2 diabetes mellitus
     Dosage: 1.0 COMP DECE
     Route: 048
     Dates: start: 20190220
  10. LERCANIDIPINO CINFA 20 mg COMPRIMIDOS RECUBIERTOS CON PELICULA EFG ... [Concomitant]
     Indication: Essential hypertension
     Dosage: 20.0 MG A-CE
     Route: 048
     Dates: start: 20130913
  11. MUSE 1000 microgramos BASTONCILLO URETRAL , 1 aplicador [Concomitant]
     Indication: Organic erectile dysfunction
     Dosage: 1000.0 MCG C/7 DAYS
     Route: 066
     Dates: start: 20181003

REACTIONS (1)
  - Ileus paralytic [Fatal]

NARRATIVE: CASE EVENT DATE: 20200928
